FAERS Safety Report 4533629-0 (Version None)
Quarter: 2004Q4

REPORT INFORMATION
  Report Type: 
  Country: None (occurrence: None)
  Receive Date: 20041221
  Receipt Date: 20041215
  Transmission Date: 20050328
  Serious: Yes (Other)
  Sender: FDA-Public Use
  Company Number: DE-BRISTOL-MYERS SQUIBB COMPANY-12795746

PATIENT
  Age: 28 Year
  Sex: Male

DRUGS (6)
  1. CYCLOPHOSPHAMIDE [Suspect]
     Indication: TERATOMA
     Route: 042
  2. BLEOMYCIN [Suspect]
     Indication: TERATOMA
     Route: 042
  3. VINCRISTINE [Suspect]
     Indication: TERATOMA
     Route: 042
  4. CISPLATIN [Concomitant]
     Indication: TERATOMA
     Route: 042
  5. VP-16 [Concomitant]
     Indication: TERATOMA
     Route: 042
  6. MESNA [Concomitant]
     Route: 042

REACTIONS (5)
  - ANAEMIA [None]
  - GRANULOCYTOPENIA [None]
  - OVERDOSE [None]
  - PYREXIA [None]
  - VOMITING [None]
